FAERS Safety Report 5615188-4 (Version None)
Quarter: 2008Q1

REPORT INFORMATION
  Report Type: 
  Country: None (occurrence: None)
  Receive Date: 20080206
  Receipt Date: 20080131
  Transmission Date: 20080703
  Serious: Yes (Other)
  Sender: FDA-Public Use
  Company Number: PHEH2008US01396

PATIENT
  Sex: Male

DRUGS (1)
  1. ELIDEL [Suspect]
     Indication: PSORIASIS
     Route: 061
     Dates: start: 20020101

REACTIONS (2)
  - INJURY [None]
  - RENAL CELL CARCINOMA [None]
